FAERS Safety Report 7133935-X (Version None)
Quarter: 2010Q4

REPORT INFORMATION
  Report Type: 
  Country: None (occurrence: None)
  Receive Date: 20101203
  Receipt Date: 20101111
  Transmission Date: 20110411
  Serious: Yes (Other)
  Sender: FDA-Public Use
  Company Number: US-BAYER-201020534NA

PATIENT

DRUGS (21)
  1. YAZ [Suspect]
     Indication: GASTROOESOPHAGEAL REFLUX DISEASE
     Dosage: 3-20 MG-MCG
     Route: 048
     Dates: start: 20080801, end: 20090101
  2. NEXIUM [Concomitant]
     Indication: GASTRIC PH DECREASED
     Dates: start: 20080101
  3. ACIPHEX [Concomitant]
     Indication: GASTRIC PH DECREASED
     Dates: start: 20080101
  4. PANTOPRAZOLE [Concomitant]
     Indication: GASTROOESOPHAGEAL REFLUX DISEASE
     Route: 048
     Dates: start: 20080101
  5. PROMETHAZINE [Concomitant]
     Dates: start: 20080101
  6. AUGMENTIN [Concomitant]
     Indication: BACTERIAL INFECTION
     Dates: start: 20080101
  7. METOCLOPRAMIDE [Concomitant]
     Indication: GASTROOESOPHAGEAL REFLUX DISEASE
     Dates: start: 20080101
  8. ALPRAZOLAM [Concomitant]
     Indication: ANXIETY
     Route: 048
     Dates: start: 20080101
  9. LEXAPRO [Concomitant]
     Indication: ANXIETY
     Route: 048
     Dates: start: 20090101
  10. LUNESTA [Concomitant]
     Dates: start: 20090101
  11. BENZACLIN [Concomitant]
     Indication: ACNE
     Dates: start: 20090101
  12. AZITHROMYCIN [Concomitant]
     Dates: start: 20080101
  13. METHYLPREDNISOLONE [Concomitant]
     Indication: GASTROOESOPHAGEAL REFLUX DISEASE
     Dates: start: 20080101
  14. TRIMETHOPRIM [Concomitant]
     Indication: BACTERIAL INFECTION
     Dates: start: 20090101
  15. DEXAMFETAMINE [Concomitant]
     Indication: FATIGUE
     Dates: start: 20090101
  16. PROMETHAZINE HCL AND CODEINE [Concomitant]
     Route: 048
     Dates: start: 20090101
  17. MOTRIN [Concomitant]
  18. REGLAN [Concomitant]
     Dosage: 10 MG IN 8 ML
  19. BENADRYL [Concomitant]
     Dosage: 25 MG IN 9 ML
  20. INAPSINE [Concomitant]
     Dosage: 1 MG IN 4 ML
  21. PHENERGAN [Concomitant]
     Route: 048

REACTIONS (21)
  - ABDOMINAL PAIN [None]
  - ALOPECIA [None]
  - ANXIETY [None]
  - ARRHYTHMIA [None]
  - ASTHENIA [None]
  - CYSTITIS [None]
  - DIARRHOEA [None]
  - HYPERHIDROSIS [None]
  - INSOMNIA [None]
  - MITRAL VALVE PROLAPSE [None]
  - NAUSEA [None]
  - NEPHROLITHIASIS [None]
  - PALPITATIONS [None]
  - PEPTIC ULCER [None]
  - PRESYNCOPE [None]
  - RENAL DISORDER [None]
  - SUPRAVENTRICULAR EXTRASYSTOLES [None]
  - SYNCOPE [None]
  - TACHYCARDIA [None]
  - TREMOR [None]
  - VENTRICULAR EXTRASYSTOLES [None]
